FAERS Safety Report 18125401 (Version 2)
Quarter: 2020Q3

REPORT INFORMATION
  Report Type: Spontaneous
  Country: JP (occurrence: JP)
  Receive Date: 20200807
  Receipt Date: 20200818
  Transmission Date: 20201103
  Serious: Yes (Hospitalization)
  Sender: FDA-Public Use
  Company Number: JP-ASTRAZENECA-2020SE98281

PATIENT
  Age: 75 Year
  Sex: Female

DRUGS (3)
  1. EXPECTORANTS [Concomitant]
  2. SYSTEMIC CORTICOSTEROIDS [Concomitant]
     Active Substance: CORTICOSTEROID NOS
  3. BENRALIZUMAB. [Suspect]
     Active Substance: BENRALIZUMAB
     Indication: ASTHMA
     Route: 058

REACTIONS (1)
  - Atelectasis [Recovered/Resolved]
